FAERS Safety Report 21177378 (Version 3)
Quarter: 2022Q4

REPORT INFORMATION
  Report Type: Spontaneous
  Country: US (occurrence: US)
  Receive Date: 20220805
  Receipt Date: 20221013
  Transmission Date: 20230113
  Serious: Yes (Other)
  Sender: FDA-Public Use
  Company Number: US-SAREPTA THERAPEUTICS INC.-SRP2022-002404

PATIENT
  Age: 32 Year
  Sex: Male
  Weight: 68.027 kg

DRUGS (2)
  1. AMONDYS 45 [Suspect]
     Active Substance: CASIMERSEN
     Indication: Duchenne muscular dystrophy
     Dosage: 2300 MILLIGRAM WEEKLY
     Route: 042
     Dates: start: 20220429, end: 20220706
  2. AMONDYS 45 [Suspect]
     Active Substance: CASIMERSEN
     Dosage: 2300 MILLIGRAM, WEEKLY
     Route: 042
     Dates: start: 20220728

REACTIONS (1)
  - Nephrolithiasis [Recovered/Resolved]

NARRATIVE: CASE EVENT DATE: 20220707
